FAERS Safety Report 8183390-6 (Version None)
Quarter: 2012Q1

REPORT INFORMATION
  Report Type: 
  Country: None (occurrence: None)
  Receive Date: 20120305
  Receipt Date: 20120223
  Transmission Date: 20120608
  Serious: Yes (Other)
  Sender: FDA-Public Use
  Company Number: IN-PFIZER INC-2012049545

PATIENT
  Age: 21 Year
  Sex: Male

DRUGS (2)
  1. PHENYTOIN [Suspect]
     Indication: GRAND MAL CONVULSION
     Dosage: 300 MG, DAILY
  2. MANDRAX [Interacting]
     Dosage: 250 MG, 2X/DAY

REACTIONS (3)
  - DRUG INTERACTION [None]
  - CEREBELLAR SYNDROME [None]
  - ANTICONVULSANT DRUG LEVEL INCREASED [None]
